FAERS Safety Report 25927932 (Version 1)
Quarter: 2025Q4

REPORT INFORMATION
  Report Type: Spontaneous
  Country: EU (occurrence: EU)
  Receive Date: 20251016
  Receipt Date: 20251016
  Transmission Date: 20260117
  Serious: Yes (Hospitalization, Disabling, Other)
  Sender: EXELIXIS
  Company Number: EU-IPSEN Group, Research and Development-2025-25292

PATIENT
  Sex: Male

DRUGS (1)
  1. CABOMETYX [Suspect]
     Active Substance: CABOZANTINIB S-MALATE
     Indication: Metastatic renal cell carcinoma
     Dosage: 60 MG ONLY 1 MONTH ON TREATMENT

REACTIONS (2)
  - Skin necrosis [Unknown]
  - Toe amputation [Unknown]
